FAERS Safety Report 24909626 (Version 1)
Quarter: 2025Q1

REPORT INFORMATION
  Report Type: Report from Study
  Country: CO (occurrence: CO)
  Receive Date: 20250131
  Receipt Date: 20250131
  Transmission Date: 20250409
  Serious: Yes (Death, Other)
  Sender: UCB
  Company Number: CO-UCBSA-2025004851

PATIENT
  Age: 61 Year
  Sex: Female

DRUGS (3)
  1. ROTIGOTINE [Suspect]
     Active Substance: ROTIGOTINE
     Indication: Parkinson^s disease
     Dosage: 2 MILLIGRAM, ONCE DAILY (QD)
     Route: 062
     Dates: start: 20250114, end: 20250116
  2. LOSARTAN [Concomitant]
     Active Substance: LOSARTAN
     Indication: Product used for unknown indication
  3. PROPANOLOL INMENOL [Concomitant]
     Indication: Product used for unknown indication
     Route: 051

REACTIONS (2)
  - Infarction [Fatal]
  - Off label use [Unknown]

NARRATIVE: CASE EVENT DATE: 20250114
